FAERS Safety Report 9468550 (Version 2)
Quarter: 2013Q4

REPORT INFORMATION
  Report Type: Spontaneous
  Country: US (occurrence: US)
  Receive Date: 20130821
  Receipt Date: 20131009
  Transmission Date: 20140711
  Serious: Yes (Death, Hospitalization)
  Sender: FDA-Public Use
  Company Number: US-GLAXOSMITHKLINE-A1037851A

PATIENT
  Age: 70 Year
  Sex: Male

DRUGS (2)
  1. ARIXTRA [Suspect]
     Indication: THROMBOSIS
     Dosage: 7.5MG PER DAY
     Route: 058
     Dates: start: 201301
  2. MULTIPLE CONCURRENT [Concomitant]

REACTIONS (3)
  - Death [Fatal]
  - Lung neoplasm malignant [Fatal]
  - Respiratory failure [Fatal]
